FAERS Safety Report 20668069 (Version 1)
Quarter: 2022Q2

REPORT INFORMATION
  Report Type: Spontaneous
  Country: US (occurrence: US)
  Receive Date: 20220404
  Receipt Date: 20220404
  Transmission Date: 20220721
  Serious: No
  Sender: FDA-Public Use
  Company Number: US-BAYER-2022A047666

PATIENT
  Age: 72 Year
  Sex: Male
  Weight: 124.72 kg

DRUGS (10)
  1. ALEVE [Suspect]
     Active Substance: NAPROXEN SODIUM
     Indication: Inflammation
     Dosage: UNK
     Route: 048
  2. ALEVE [Suspect]
     Active Substance: NAPROXEN SODIUM
     Indication: Inflammation
     Dosage: 10 DF
     Route: 048
     Dates: start: 202203, end: 202203
  3. ATORVASTATIN [Concomitant]
     Active Substance: ATORVASTATIN
  4. SPIRONOLACTONE [Concomitant]
     Active Substance: SPIRONOLACTONE
  5. FUROSEMIDE [Concomitant]
     Active Substance: FUROSEMIDE
  6. ALLOPURINOL [Concomitant]
     Active Substance: ALLOPURINOL
  7. NOVOLOG [Concomitant]
     Active Substance: INSULIN ASPART
  8. TRULICITY [Concomitant]
     Active Substance: DULAGLUTIDE
  9. PLAVIX [Concomitant]
     Active Substance: CLOPIDOGREL BISULFATE
  10. COUMADIN [Concomitant]
     Active Substance: WARFARIN SODIUM

REACTIONS (3)
  - Accidental exposure to product by elderly person [Unknown]
  - Product confusion [Unknown]
  - Product use in unapproved indication [None]

NARRATIVE: CASE EVENT DATE: 20220301
